FAERS Safety Report 4679762-4 (Version None)
Quarter: 2005Q2

REPORT INFORMATION
  Report Type: 
  Country: None (occurrence: None)
  Receive Date: 20050531
  Receipt Date: 20050318
  Transmission Date: 20051028
  Serious: Yes (Death, Hospitalization)
  Sender: FDA-Public Use
  Company Number: 2005000580

PATIENT
  Age: 60 Year
  Sex: Male

DRUGS (2)
  1. ERLOTINIB HCL (TABLET) (ERLOTINIB HCL) [Suspect]
     Indication: NON-SMALL CELL LUNG CANCER
     Dosage: 150 MG (QD), ORAL
     Route: 048
     Dates: start: 20050228, end: 20050307
  2. TRIAMCINOLONE ACETONIDE [Concomitant]

REACTIONS (6)
  - BODY TEMPERATURE DECREASED [None]
  - DYSPNOEA EXERTIONAL [None]
  - HAEMOPTYSIS [None]
  - INTERSTITIAL LUNG DISEASE [None]
  - RESPIRATORY DISORDER [None]
  - STOMATITIS [None]
